FAERS Safety Report 6557003-0 (Version None)
Quarter: 2010Q1

REPORT INFORMATION
  Report Type: 
  Country: None (occurrence: None)
  Receive Date: 20100126
  Receipt Date: 20100121
  Transmission Date: 20100710
  Serious: Yes (Death)
  Sender: FDA-Public Use
  Company Number: 2010000327

PATIENT
  Sex: Female

DRUGS (1)
  1. FENTORA [Suspect]
     Dosage: (200 MCG), BU
     Route: 002

REACTIONS (1)
  - NO ADVERSE EVENT [None]
